FAERS Safety Report 9018292 (Version 1)
Quarter: 2013Q1

REPORT INFORMATION
  Report Type: Spontaneous
  Country: US (occurrence: None)
  Receive Date: 20130111
  Receipt Date: 20130111
  Transmission Date: 20140127
  Serious: No
  Sender: FDA-Public Use
  Company Number: None

PATIENT
  Sex: Male
  Weight: 85.8 kg

DRUGS (3)
  1. RITUXIMAB [Suspect]
  2. BENDAMUSTINE HYDROCHLORIDE [Suspect]
  3. LENALIDOMIDE [Suspect]

REACTIONS (3)
  - Rash pruritic [None]
  - Urticaria [None]
  - Infusion related reaction [None]
